FAERS Safety Report 7446389-0 (Version None)
Quarter: 2011Q2

REPORT INFORMATION
  Report Type: 
  Country: None (occurrence: None)
  Receive Date: 20110429
  Receipt Date: 20100903
  Transmission Date: 20111010
  Serious: No
  Sender: FDA-Public Use
  Company Number: US-ASTRAZENECA-2010SE41947

PATIENT
  Age: 59 Year
  Sex: Female
  Weight: 135.2 kg

DRUGS (14)
  1. PRILOSEC OTC [Suspect]
     Route: 048
  2. SINGULAIR [Concomitant]
     Indication: ASTHMA
  3. PLAVIX [Concomitant]
  4. NEXIUM [Suspect]
     Indication: GASTROOESOPHAGEAL REFLUX DISEASE
     Route: 048
     Dates: start: 20010101
  5. DIGESTIVE ADVANTAGE [Concomitant]
  6. COZAAR [Concomitant]
  7. ALBUTEROL [Concomitant]
     Indication: ASTHMA
  8. BENADRYL [Concomitant]
  9. NEURONTIN [Concomitant]
     Indication: NEURALGIA
  10. SIMVASTATIN [Concomitant]
  11. ADVAIR DISKUS 100/50 [Concomitant]
     Indication: ASTHMA
  12. CHLOR-TRIMETON [Concomitant]
  13. PRILOSEC [Suspect]
     Indication: GASTROOESOPHAGEAL REFLUX DISEASE
     Route: 048
     Dates: start: 19950101
  14. LASIX [Concomitant]

REACTIONS (4)
  - DRUG DOSE OMISSION [None]
  - DIARRHOEA [None]
  - ABDOMINAL PAIN UPPER [None]
  - DRUG INEFFECTIVE [None]
